FAERS Safety Report 10060262 (Version 1)
Quarter: 2014Q2

REPORT INFORMATION
  Report Type: Spontaneous
  Country: FR (occurrence: FR)
  Receive Date: 20140404
  Receipt Date: 20140404
  Transmission Date: 20141212
  Serious: Yes (Hospitalization)
  Sender: FDA-Public Use
  Company Number: FR-JNJFOC-20140401662

PATIENT
  Age: 22 Year
  Sex: Male

DRUGS (9)
  1. TOPALGIC [Suspect]
     Indication: MUSCULOSKELETAL PAIN
     Route: 065
     Dates: start: 20140205, end: 20140217
  2. DIPROSTENE [Suspect]
     Indication: PRODUCT USED FOR UNKNOWN INDICATION
     Route: 014
     Dates: start: 20140210, end: 20140217
  3. CARTREX [Suspect]
     Indication: PAIN
     Route: 048
  4. CARTREX [Suspect]
     Indication: PAIN
     Route: 048
     Dates: start: 20140205, end: 20140217
  5. CARTREX [Suspect]
     Indication: MUSCULOSKELETAL PAIN
     Route: 048
  6. CARTREX [Suspect]
     Indication: MUSCULOSKELETAL PAIN
     Route: 048
     Dates: start: 20140205, end: 20140217
  7. MOPRAL [Suspect]
     Indication: PRODUCT USED FOR UNKNOWN INDICATION
     Route: 065
     Dates: start: 20140210, end: 20140217
  8. KETOPROFEN [Suspect]
     Indication: PRODUCT USED FOR UNKNOWN INDICATION
     Route: 048
     Dates: start: 20140210, end: 20140214
  9. LAMISIL [Suspect]
     Indication: ONYCHOMYCOSIS
     Route: 065
     Dates: start: 20140130, end: 20140217

REACTIONS (1)
  - Acute generalised exanthematous pustulosis [Recovered/Resolved]
